FAERS Safety Report 6669820-7 (Version None)
Quarter: 2010Q2

REPORT INFORMATION
  Report Type: 
  Country: None (occurrence: None)
  Receive Date: 20100402
  Receipt Date: 20100324
  Transmission Date: 20101027
  Serious: Yes (Life-Threatening)
  Sender: FDA-Public Use
  Company Number: 2010US000366

PATIENT
  Age: 33 Year
  Sex: Male

DRUGS (3)
  1. AMBISOME [Suspect]
     Indication: HYPERPYREXIA
     Dosage: 1 MG/KG, IV NOS
     Route: 042
     Dates: start: 20090810, end: 20090810
  2. CYTARABINE [Suspect]
     Indication: ACUTE MYELOID LEUKAEMIA
     Dosage: 166 MG, UID/QD, IV NOS
     Route: 042
     Dates: start: 20090728, end: 20090803
  3. IDARUBICIN HCL [Concomitant]

REACTIONS (7)
  - ABDOMINAL PAIN [None]
  - ANAPHYLACTOID REACTION [None]
  - BRONCHOSPASM [None]
  - DIARRHOEA [None]
  - HYPERPYREXIA [None]
  - OXYGEN SATURATION DECREASED [None]
  - STOMATITIS [None]
